FAERS Safety Report 17127603 (Version 2)
Quarter: 2019Q4

REPORT INFORMATION
  Report Type: Spontaneous
  Country: US (occurrence: US)
  Receive Date: 20191209
  Receipt Date: 20191218
  Transmission Date: 20200122
  Serious: No
  Sender: FDA-Public Use
  Company Number: US-BAYER-2019-221936

PATIENT
  Age: 66 Year
  Sex: Male
  Weight: 86.17 kg

DRUGS (2)
  1. CLARITIN [Suspect]
     Active Substance: LORATADINE
     Indication: NASOPHARYNGITIS
  2. CLARITIN [Suspect]
     Active Substance: LORATADINE
     Indication: ALLERGIC RESPIRATORY SYMPTOM
     Dosage: 1 DF , IN MORNING
     Route: 048
     Dates: start: 20191122, end: 20191205

REACTIONS (2)
  - Drug ineffective [Unknown]
  - Product lot number issue [None]
